FAERS Safety Report 9013887 (Version 2)
Quarter: 2013Q2

REPORT INFORMATION
  Report Type: Spontaneous
  Country: US (occurrence: US)
  Receive Date: 20130115
  Receipt Date: 20130412
  Transmission Date: 20140414
  Serious: Yes (Other)
  Sender: FDA-Public Use
  Company Number: PHEH2013US000999

PATIENT
  Sex: Male

DRUGS (4)
  1. GILENYA [Suspect]
     Dosage: 0.5 MG, QD
     Route: 048
  2. TACIDINE [Concomitant]
     Dosage: UNK UKN, UNK
  3. AMLODIPINE [Concomitant]
     Dosage: UNK UKN, UNK
  4. BETADINE [Concomitant]
     Dosage: UNK UKN, UNK

REACTIONS (4)
  - Multiple sclerosis relapse [Unknown]
  - Optic neuritis [Unknown]
  - Visual impairment [Unknown]
  - Gait disturbance [Unknown]
